FAERS Safety Report 5696785-7 (Version None)
Quarter: 2008Q2

REPORT INFORMATION
  Report Type: 
  Country: None (occurrence: None)
  Receive Date: 20080407
  Receipt Date: 20080328
  Transmission Date: 20081010
  Serious: Yes (Other)
  Sender: FDA-Public Use
  Company Number: APP200800233

PATIENT
  Age: 74 Year
  Sex: Female
  Weight: 113 kg

DRUGS (4)
  1. HEPARIN SODIUM INJECTION [Suspect]
     Indication: CATHETERISATION CARDIAC
     Dosage: 5000 USP UNITS, INTRAVENOUS BOLUS
     Route: 040
     Dates: start: 20080318, end: 20080318
  2. HEPARIN SODIUM INJECTION [Suspect]
     Indication: STENT PLACEMENT
     Dosage: 5000 USP UNITS, INTRAVENOUS BOLUS
     Route: 040
     Dates: start: 20080318, end: 20080318
  3. HEPARIN SODIUM INJECTION [Suspect]
     Indication: CATHETERISATION CARDIAC
     Dosage: 5000 USP UNITS, INTRAVENOUS BOLUS
     Route: 040
     Dates: start: 20080318, end: 20080318
  4. HEPARIN SODIUM INJECTION [Suspect]
     Indication: STENT PLACEMENT
     Dosage: 5000 USP UNITS, INTRAVENOUS BOLUS
     Route: 040
     Dates: start: 20080318, end: 20080318

REACTIONS (2)
  - DRUG INEFFECTIVE [None]
  - THROMBOSIS [None]
